FAERS Safety Report 8459323-1 (Version None)
Quarter: 2012Q2

REPORT INFORMATION
  Report Type: 
  Country: None (occurrence: None)
  Receive Date: 20120622
  Receipt Date: 20120612
  Transmission Date: 20120825
  Serious: Yes (Hospitalization, Other)
  Sender: FDA-Public Use
  Company Number: US-ROCHE-791332

PATIENT
  Sex: Male
  Weight: 86.26 kg

DRUGS (3)
  1. ACCUTANE [Suspect]
     Dates: start: 19910101, end: 19920101
  2. ACCUTANE [Suspect]
     Indication: ACNE
     Route: 065
     Dates: start: 19900101, end: 19910101
  3. ACETAMINOPHEN [Concomitant]
     Indication: HEADACHE

REACTIONS (7)
  - CHAPPED LIPS [None]
  - ANXIETY [None]
  - COLITIS ULCERATIVE [None]
  - DRY MOUTH [None]
  - INFLAMMATORY BOWEL DISEASE [None]
  - DRY EYE [None]
  - IRRITABLE BOWEL SYNDROME [None]
